FAERS Safety Report 9837579 (Version 1)
Quarter: 2013Q4

REPORT INFORMATION
  Report Type: Spontaneous
  Country: US (occurrence: None)
  Receive Date: 20131125
  Receipt Date: 20131125
  Transmission Date: 20140711
  Serious: Yes (Other)
  Sender: FDA-Public Use
  Company Number: FK201301506

PATIENT
  Age: 48 Year
  Sex: Female

DRUGS (2)
  1. FLUOROURACIL (MANUFACTURER UNKNOWN) (FLUOROURACIL) (FLUOROURACIL) [Suspect]
     Indication: PRODUCT USED FOR UNKNOWN INDICATION
  2. ROLAPITANT (ROLAPITANT) (ROLAPITANT) [Suspect]
     Indication: PROPHYLAXIS OF NAUSEA AND VOMITING

REACTIONS (2)
  - Diarrhoea [None]
  - Nausea [None]
